FAERS Safety Report 17817197 (Version 1)
Quarter: 2020Q2

REPORT INFORMATION
  Report Type: Spontaneous
  Country: AU (occurrence: AU)
  Receive Date: 20200522
  Receipt Date: 20200522
  Transmission Date: 20200714
  Serious: Yes (Other)
  Sender: FDA-Public Use
  Company Number: AU-GW PHARMA-202001AUGW00176

PATIENT

DRUGS (3)
  1. KEPPRA [Concomitant]
     Active Substance: LEVETIRACETAM
     Indication: GENERALISED TONIC-CLONIC SEIZURE
     Dosage: UNK
     Route: 065
  2. EPIDIOLEX [Suspect]
     Active Substance: CANNABIDIOL
     Indication: PRODUCT USED FOR UNKNOWN INDICATION
     Dosage: 5 MG/KG
     Route: 048
  3. EPIDIOLEX [Suspect]
     Active Substance: CANNABIDIOL
     Dosage: 25 MG/KG
     Route: 048

REACTIONS (13)
  - Surgery [Unknown]
  - Generalised tonic-clonic seizure [Recovering/Resolving]
  - Rash [Unknown]
  - Diarrhoea [Unknown]
  - Asthenia [Unknown]
  - Malaise [Unknown]
  - Insomnia [Unknown]
  - Infection [Unknown]
  - Status epilepticus [Unknown]
  - Fatigue [Unknown]
  - Somnolence [Unknown]
  - Lethargy [Unknown]
  - Overdose [Unknown]
